FAERS Safety Report 11524390 (Version 1)
Quarter: 2015Q3

REPORT INFORMATION
  Report Type: Spontaneous
  Country: US (occurrence: US)
  Receive Date: 20150918
  Receipt Date: 20150918
  Transmission Date: 20151125
  Serious: No
  Sender: FDA-Public Use
  Company Number: US-ROCHE-698360

PATIENT
  Age: 51 Year
  Sex: Female

DRUGS (3)
  1. RIBAVIRIN. [Suspect]
     Active Substance: RIBAVIRIN
     Indication: HEPATITIS C
     Dosage: DIVIDED DOSES
     Route: 048
  2. PEGASYS [Suspect]
     Active Substance: PEGINTERFERON ALFA-2A
     Indication: HEPATITIS C
     Dosage: FORM: PRE-FILLED SYRINGE
     Route: 065
  3. NEXIUM [Concomitant]
     Active Substance: ESOMEPRAZOLE MAGNESIUM
     Indication: GASTROOESOPHAGEAL REFLUX DISEASE
     Dosage: DOSE: DAILY
     Route: 065

REACTIONS (7)
  - Abdominal pain [Not Recovered/Not Resolved]
  - Nausea [Not Recovered/Not Resolved]
  - Respiratory fume inhalation disorder [Not Recovered/Not Resolved]
  - Influenza like illness [Not Recovered/Not Resolved]
  - Epistaxis [Unknown]
  - Cognitive disorder [Not Recovered/Not Resolved]
  - Haematemesis [Not Recovered/Not Resolved]

NARRATIVE: CASE EVENT DATE: 20100317
